FAERS Safety Report 24928261 (Version 1)
Quarter: 2025Q1

REPORT INFORMATION
  Report Type: Spontaneous
  Country: US (occurrence: US)
  Receive Date: 20250205
  Receipt Date: 20250205
  Transmission Date: 20250409
  Serious: Yes (Other)
  Sender: MYLAN
  Company Number: US-MYLANLABS-2025M1009151

PATIENT
  Age: 45 Year
  Sex: Female

DRUGS (2)
  1. PREDNISONE [Suspect]
     Active Substance: PREDNISONE
     Indication: Drug reaction with eosinophilia and systemic symptoms
     Dosage: 60 MILLIGRAM, QD, (1 MG/KG/D)  FOR 8 DAYS
     Route: 048
  2. GALCANEZUMAB [Concomitant]
     Active Substance: GALCANEZUMAB
     Indication: Migraine
     Dosage: UNK, MONTHLY (MONTHLY INJECTABLE GALCANEZUMAB)
     Route: 065

REACTIONS (1)
  - Drug ineffective [Unknown]
